FAERS Safety Report 4351456-4 (Version None)
Quarter: 2004Q2

REPORT INFORMATION
  Report Type: 
  Country: None (occurrence: None)
  Receive Date: 20040430
  Receipt Date: 20040430
  Transmission Date: 20050107
  Serious: Yes (Life-Threatening, Hospitalization)
  Sender: FDA-Public Use
  Company Number: None

PATIENT
  Sex: Female

DRUGS (6)
  1. TAMOXIFEN 20 MG [Suspect]
     Indication: BREAST CANCER
     Dosage: 20 MG QD ORAL
     Route: 048
     Dates: start: 20030501, end: 20040319
  2. HYDROCHLOROTHIAZIDE [Concomitant]
  3. PAROXETINE HCL [Concomitant]
  4. CELECOXIB [Concomitant]
  5. PROPOXYPHENE HCL AND ACETAMINOPHEN [Concomitant]
  6. TAMOXIFEN CITRATE [Concomitant]

REACTIONS (3)
  - DEEP VEIN THROMBOSIS [None]
  - DYSPNOEA [None]
  - PULMONARY EMBOLISM [None]
